FAERS Safety Report 5953066-1 (Version None)
Quarter: 2008Q4

REPORT INFORMATION
  Report Type: 
  Country: None (occurrence: None)
  Receive Date: 20081114
  Receipt Date: 20071012
  Transmission Date: 20090506
  Serious: No
  Sender: FDA-Public Use
  Company Number: US-BRISTOL-MYERS SQUIBB COMPANY-13940309

PATIENT
  Age: 79 Year
  Sex: Female
  Weight: 68 kg

DRUGS (3)
  1. GLUCOPHAGE XR [Suspect]
  2. IMODIUM [Concomitant]
  3. COLESTIPOL HYDROCHLORIDE [Concomitant]

REACTIONS (1)
  - DIARRHOEA [None]
